FAERS Safety Report 8433228-4 (Version None)
Quarter: 2012Q2

REPORT INFORMATION
  Report Type: 
  Country: None (occurrence: None)
  Receive Date: 20120323
  Receipt Date: 20110601
  Transmission Date: 20120825
  Serious: Yes (Other)
  Sender: FDA-Public Use
  Company Number: 163-21880-11060463

PATIENT
  Age: 79 Year
  Sex: Male
  Weight: 75.2971 kg

DRUGS (13)
  1. UROXATRAL [Concomitant]
  2. NEUPOGEN [Concomitant]
  3. NEXIUM [Concomitant]
  4. ZANTAC [Concomitant]
  5. DEXAMETHASONE [Concomitant]
  6. LOPRESSOR [Concomitant]
  7. SPIRIVA [Concomitant]
  8. COUMADIN [Concomitant]
  9. PROCRIT [Concomitant]
  10. MAGNESIUM (MAGNESIUM) [Concomitant]
  11. LASIX [Concomitant]
  12. LENALIDOMIDE [Suspect]
     Indication: MYELODYSPLASTIC SYNDROME
     Dosage: 10 MG, X 21 DAYS, PO
     Route: 048
     Dates: start: 20110511
  13. LISINOPRIL [Concomitant]

REACTIONS (2)
  - FULL BLOOD COUNT DECREASED [None]
  - ANAEMIA [None]
